FAERS Safety Report 11749790 (Version 3)
Quarter: 2016Q2

REPORT INFORMATION
  Report Type: Report from Study
  Country: US (occurrence: US)
  Receive Date: 20151118
  Receipt Date: 20160408
  Transmission Date: 20160815
  Serious: Yes (Hospitalization)
  Sender: FDA-Public Use
  Company Number: US-AMGEN-USASL2015120347

PATIENT
  Age: 43 Year
  Sex: Male
  Weight: 81.63 kg

DRUGS (2)
  1. ENBREL [Suspect]
     Active Substance: ETANERCEPT
     Indication: PSORIASIS
     Dosage: 50 MG, QWK
     Route: 058
     Dates: start: 2009
  2. ENBREL [Suspect]
     Active Substance: ETANERCEPT
     Indication: PSORIATIC ARTHROPATHY

REACTIONS (1)
  - Cardiac operation [Unknown]

NARRATIVE: CASE EVENT DATE: 20151109
